FAERS Safety Report 12238258 (Version 2)
Quarter: 2016Q2

REPORT INFORMATION
  Report Type: Spontaneous
  Country: US (occurrence: US)
  Receive Date: 20160405
  Receipt Date: 20160510
  Transmission Date: 20160815
  Serious: Yes (Hospitalization, Other)
  Sender: FDA-Public Use
  Company Number: US-PFIZER INC-2016188178

PATIENT
  Age: 64 Year
  Sex: Male
  Weight: 76 kg

DRUGS (2)
  1. XELJANZ [Suspect]
     Active Substance: TOFACITINIB CITRATE
     Dosage: ONE PILL A DAY
     Dates: start: 201601, end: 201602
  2. XELJANZ [Suspect]
     Active Substance: TOFACITINIB CITRATE
     Indication: IMPAIRED QUALITY OF LIFE
     Dosage: TWO PILLS A DAY
     Dates: start: 2015

REACTIONS (5)
  - Malaise [Unknown]
  - Visual impairment [Not Recovered/Not Resolved]
  - Bronchitis [Recovered/Resolved with Sequelae]
  - Blood glucose increased [Recovered/Resolved]
  - Intentional product use issue [Unknown]

NARRATIVE: CASE EVENT DATE: 2016
